FAERS Safety Report 16965628 (Version 1)
Quarter: 2019Q4

REPORT INFORMATION
  Report Type: Spontaneous
  Country: DE (occurrence: DE)
  Receive Date: 20191028
  Receipt Date: 20191028
  Transmission Date: 20200122
  Serious: Yes (Life-Threatening)
  Sender: FDA-Public Use
  Company Number: DE-ASTRAZENECA-2019SF50762

PATIENT
  Age: 52 Year
  Sex: Male
  Weight: 93 kg

DRUGS (1)
  1. DAXAS [Suspect]
     Active Substance: ROFLUMILAST
     Indication: PRODUCTIVE COUGH
     Dosage: 250UG/INHAL DAILY
     Route: 048
     Dates: start: 20191005, end: 20191007

REACTIONS (3)
  - Salivary hypersecretion [Recovered/Resolved]
  - Cough [Recovered/Resolved]
  - Productive cough [Recovered/Resolved]

NARRATIVE: CASE EVENT DATE: 20191006
